FAERS Safety Report 6300167-4 (Version None)
Quarter: 2009Q3

REPORT INFORMATION
  Report Type: 
  Country: None (occurrence: None)
  Receive Date: 20090806
  Receipt Date: 20090731
  Transmission Date: 20100115
  Serious: Yes (Hospitalization, Disabling)
  Sender: FDA-Public Use
  Company Number: PHHO2005GB05833

PATIENT
  Sex: Female
  Weight: 78.3 kg

DRUGS (20)
  1. ZOLEDRONATE T29581+SOLINJ+BM [Suspect]
     Indication: METASTASES TO BONE
     Dosage: 4 MG, UNK
     Route: 042
     Dates: start: 20040402, end: 20041221
  2. EPIRUBICIN [Concomitant]
     Indication: BREAST CANCER
     Dosage: 180 MG, UNK
     Route: 042
     Dates: start: 20040402, end: 20040402
  3. EPIRUBICIN [Concomitant]
     Dosage: UNK
     Route: 042
     Dates: start: 20040423, end: 20040423
  4. EPIRUBICIN [Concomitant]
     Dosage: UNK
     Route: 042
     Dates: start: 20040514, end: 20090514
  5. EPIRUBICIN [Concomitant]
     Dosage: UNK
     Route: 042
     Dates: start: 20040604, end: 20040604
  6. DEXAMETHASONE [Concomitant]
     Indication: ANTIEMETIC SUPPORTIVE CARE
     Dosage: 8 MG, UNK
     Route: 042
     Dates: start: 20040402
  7. DEXAMETHASONE [Concomitant]
     Dosage: 2 MG, TID
     Route: 048
     Dates: start: 20040402, end: 20040404
  8. DEXAMETHASONE [Concomitant]
     Dosage: 10 MG, UNK
     Route: 042
     Dates: start: 20040922, end: 20040922
  9. DEXAMETHASONE [Concomitant]
     Dosage: 2 MG, TID
     Route: 048
     Dates: start: 20040922, end: 20080924
  10. DEXAMETHASONE [Concomitant]
     Dosage: 4.0MG
     Route: 042
     Dates: end: 20080729
  11. GRANISETRON HCL [Concomitant]
     Indication: ANTIEMETIC SUPPORTIVE CARE
     Dosage: 3 MG, UNK
     Route: 042
     Dates: start: 20040402, end: 20040402
  12. GRANISETRON HCL [Concomitant]
     Dosage: 1 MG, UNK
     Route: 048
     Dates: start: 20040402, end: 20040403
  13. DOMPERIDONE [Concomitant]
     Indication: ANTIEMETIC SUPPORTIVE CARE
     Dosage: 10-20 MG, QD PRN
     Route: 048
     Dates: start: 20040402, end: 20040409
  14. DOMPERIDONE [Concomitant]
     Dosage: 10-20 MG, QD PRN
     Route: 048
     Dates: start: 20040923, end: 20041006
  15. FOLINIC ACID [Concomitant]
     Dosage: 15 MG, UNK
     Route: 048
     Dates: start: 20040923, end: 20040924
  16. CYCLOPHOSPHAMIDE [Concomitant]
     Indication: BREAST CANCER
     Dosage: 200MG
     Route: 048
     Dates: start: 20040922, end: 20041004
  17. 5-FU [Concomitant]
     Indication: BREAST CANCER
     Dosage: 1100 MG, UNK
     Route: 042
     Dates: start: 20040922, end: 20040929
  18. METHOTREXATE [Concomitant]
     Dosage: 75 MG, UNK
     Route: 042
     Dates: start: 20040922, end: 20040929
  19. ONDASETRON [Concomitant]
     Indication: ANTIEMETIC SUPPORTIVE CARE
     Dosage: 8 MG, UNK
     Route: 042
     Dates: start: 20040922, end: 20080729
  20. ARIMIDEX [Concomitant]
     Indication: BREAST CANCER
     Route: 048
     Dates: start: 20040927

REACTIONS (9)
  - ARTHRALGIA [None]
  - BONE DISORDER [None]
  - BURSA DISORDER [None]
  - GAIT DISTURBANCE [None]
  - HAEMANGIOMA [None]
  - HIP ARTHROPLASTY [None]
  - JOINT STIFFNESS [None]
  - MUSCLE DISORDER [None]
  - OSTEONECROSIS [None]
